FAERS Safety Report 6025588-9 (Version None)
Quarter: 2008Q4

REPORT INFORMATION
  Report Type: 
  Country: None (occurrence: None)
  Receive Date: 20081231
  Receipt Date: 20081222
  Transmission Date: 20090506
  Serious: Yes (Other)
  Sender: FDA-Public Use
  Company Number: US-AMGEN-QUU325214

PATIENT
  Sex: Male

DRUGS (19)
  1. ARANESP [Suspect]
     Indication: ANAEMIA
     Dates: start: 20080709
  2. FERROUS SULFATE TAB [Concomitant]
  3. COUMADIN [Concomitant]
  4. MEGACE [Concomitant]
  5. LIPITOR [Concomitant]
  6. HYDRALAZINE HCL [Concomitant]
  7. ASPIRIN [Concomitant]
  8. SULPHAMETHOXAZOLE [Concomitant]
  9. ZEMPLAR [Concomitant]
  10. LANTUS [Concomitant]
  11. LISINOPRIL [Concomitant]
  12. METOPROLOL [Concomitant]
  13. PREDNISONE TAB [Concomitant]
  14. PROGRAF [Concomitant]
  15. CELLCEPT [Concomitant]
  16. VITAMIN B COMPLEX CAP [Concomitant]
  17. ALLOPURINOL [Concomitant]
  18. SODIUM BICARBONATE [Concomitant]
  19. COMPAZINE [Concomitant]

REACTIONS (1)
  - ANAEMIA [None]
